FAERS Safety Report 22284181 (Version 2)
Quarter: 2023Q2

REPORT INFORMATION
  Report Type: Spontaneous
  Country: FR (occurrence: FR)
  Receive Date: 20230504
  Receipt Date: 20230509
  Transmission Date: 20230721
  Serious: Yes (Other)
  Sender: FDA-Public Use
  Company Number: None

PATIENT
  Age: 86 Year
  Sex: Female

DRUGS (3)
  1. ELIQUIS [Suspect]
     Active Substance: APIXABAN
     Indication: Cerebrovascular accident prophylaxis
     Dosage: FREQUENCY TIME :1 DAY
     Route: 048
     Dates: start: 20230408, end: 20230417
  2. CLINDAMYCIN [Suspect]
     Active Substance: CLINDAMYCIN
     Dosage: 900 MG, 1X/DAY
     Route: 048
     Dates: start: 20230412, end: 20230417
  3. OFLOXACIN [Suspect]
     Active Substance: OFLOXACIN
     Dosage: 200 MG, 1X/DAY
     Route: 048
     Dates: start: 20230412, end: 20230417

REACTIONS (1)
  - Cutaneous vasculitis [Recovering/Resolving]

NARRATIVE: CASE EVENT DATE: 20230417
